FAERS Safety Report 9789315 (Version 1)
Quarter: 2013Q4

REPORT INFORMATION
  Report Type: Report from Study
  Country: US (occurrence: US)
  Receive Date: 20131231
  Receipt Date: 20131231
  Transmission Date: 20140711
  Serious: Yes (Death, Hospitalization)
  Sender: FDA-Public Use
  Company Number: US-ROCHE-1322982

PATIENT
  Age: 51 Year
  Sex: Male

DRUGS (4)
  1. BEVACIZUMAB [Suspect]
     Indication: RENAL CELL CARCINOMA
     Route: 042
     Dates: start: 20130620
  2. TRC105 [Suspect]
     Indication: RENAL CELL CARCINOMA
     Route: 042
     Dates: start: 20130620
  3. TRC105 [Suspect]
     Route: 042
  4. TRC105 [Suspect]
     Dosage: LAST DOSE ADMINISTERED 07/AUG/2013
     Route: 042

REACTIONS (1)
  - Renal cell carcinoma [Fatal]
